FAERS Safety Report 8912037 (Version 1)
Quarter: 2012Q4

REPORT INFORMATION
  Report Type: 
  Country: IT (occurrence: IT)
  Receive Date: 20121115
  Receipt Date: 20121115
  Transmission Date: 20130627
  Serious: Yes (Hospitalization)
  Sender: FDA-Public Use
  Company Number: IT-ASTRAZENECA-2012SE84949

PATIENT
  Age: 29950 Day
  Sex: Female

DRUGS (3)
  1. PROVISACOR [Suspect]
     Route: 048
     Dates: start: 20120912
  2. PLAVIX [Suspect]
     Route: 048
     Dates: start: 20120912
  3. RANEXA [Concomitant]
     Route: 048
     Dates: start: 20120912

REACTIONS (2)
  - Acute coronary syndrome [Recovered/Resolved]
  - Rhabdomyolysis [Recovered/Resolved]
